FAERS Safety Report 5032711-1 (Version None)
Quarter: 2006Q2

REPORT INFORMATION
  Report Type: 
  Country: None (occurrence: None)
  Receive Date: 20060622
  Receipt Date: 20060220
  Transmission Date: 20061013
  Serious: Yes (Other)
  Sender: FDA-Public Use
  Company Number: GB-BRISTOL-MYERS SQUIBB COMPANY-13290481

PATIENT
  Age: 30 Year
  Sex: Female

DRUGS (4)
  1. REYATAZ [Suspect]
     Indication: HIV INFECTION
     Route: 048
     Dates: start: 20050315
  2. RITONAVIR [Concomitant]
     Indication: HIV INFECTION
     Route: 048
     Dates: start: 20050315
  3. KIVEXA [Concomitant]
     Indication: HIV INFECTION
     Route: 048
     Dates: start: 20050315
  4. LAMIVUDINE [Concomitant]
     Indication: HIV INFECTION
     Route: 048
     Dates: start: 20050315

REACTIONS (2)
  - ABORTION SPONTANEOUS [None]
  - PREGNANCY [None]
